FAERS Safety Report 13438571 (Version 1)
Quarter: 2017Q2

REPORT INFORMATION
  Report Type: Spontaneous
  Country: US (occurrence: US)
  Receive Date: 20170412
  Receipt Date: 20170412
  Transmission Date: 20170830
  Serious: Yes (Other)
  Sender: FDA-Public Use
  Company Number: US-BRISTOL-MYERS SQUIBB COMPANY-BMS-2017-030032

PATIENT
  Sex: Female

DRUGS (6)
  1. ABILIFY [Suspect]
     Active Substance: ARIPIPRAZOLE
     Indication: SCHIZOPHRENIA
     Dosage: 5 MG, QD
     Route: 048
     Dates: start: 201610
  2. ABILIFY [Suspect]
     Active Substance: ARIPIPRAZOLE
     Indication: PRODUCT USED FOR UNKNOWN INDICATION
     Dosage: 10 MG, QD
     Route: 048
  3. ABILIFY [Suspect]
     Active Substance: ARIPIPRAZOLE
     Indication: PRODUCT USED FOR UNKNOWN INDICATION
     Dosage: 5 MG, QD
     Route: 048
  4. ABILIFY MAINTENA [Suspect]
     Active Substance: ARIPIPRAZOLE
     Indication: SCHIZOPHRENIA
     Dosage: UNK, QMO
     Route: 050
     Dates: start: 20170403
  5. SYNTHROID [Concomitant]
     Active Substance: LEVOTHYROXINE SODIUM
     Indication: PRODUCT USED FOR UNKNOWN INDICATION
     Route: 065
  6. CYTOMEL [Concomitant]
     Active Substance: LIOTHYRONINE SODIUM
     Indication: PRODUCT USED FOR UNKNOWN INDICATION
     Route: 065

REACTIONS (14)
  - Prescribed underdose [Unknown]
  - Fibromyalgia [Unknown]
  - Affective disorder [Unknown]
  - Pain in extremity [Unknown]
  - Dysstasia [Unknown]
  - Logorrhoea [Not Recovered/Not Resolved]
  - Tremor [Unknown]
  - Dry skin [Not Recovered/Not Resolved]
  - Abdominal distension [Unknown]
  - Skin fissures [Not Recovered/Not Resolved]
  - Muscle spasms [Unknown]
  - Thinking abnormal [Not Recovered/Not Resolved]
  - Gait disturbance [Unknown]
  - Diplopia [Not Recovered/Not Resolved]
